FAERS Safety Report 20586303 (Version 1)
Quarter: 2022Q1

REPORT INFORMATION
  Report Type: Spontaneous
  Country: US (occurrence: US)
  Receive Date: 20220313
  Receipt Date: 20220313
  Transmission Date: 20220423
  Serious: Yes (Hospitalization)
  Sender: FDA-Public Use
  Company Number: US-TEVA-2022-US-2007708

PATIENT
  Sex: Female

DRUGS (1)
  1. WARFARIN SODIUM [Suspect]
     Active Substance: WARFARIN SODIUM
     Indication: Cerebrovascular accident prophylaxis
     Route: 065
     Dates: start: 202109

REACTIONS (2)
  - Chest pain [Unknown]
  - Drug ineffective [Unknown]
